FAERS Safety Report 9206280 (Version 1)
Quarter: 2013Q1

REPORT INFORMATION
  Report Type: Spontaneous
  Country: US (occurrence: None)
  Receive Date: 20120718
  Receipt Date: 20120718
  Transmission Date: 20140127
  Serious: Yes (Other)
  Sender: FDA-Public Use
  Company Number: 163-50794-11071339

PATIENT
  Age: 72 Year
  Sex: Male

DRUGS (2)
  1. VIDAZA [Suspect]
     Indication: MYELODYSPLASTIC SYNDROME
     Dosage: UNK
  2. FILGRASTIM (FILGRASTIM) (UNKNOWN) [Concomitant]

REACTIONS (4)
  - Acute myelomonocytic leukaemia [None]
  - Pancytopenia [None]
  - Fatigue [None]
  - Dyspnoea [None]
